FAERS Safety Report 25887327 (Version 1)
Quarter: 2025Q4

REPORT INFORMATION
  Report Type: Report from Study
  Country: EU (occurrence: EU)
  Receive Date: 20251006
  Receipt Date: 20251006
  Transmission Date: 20260117
  Serious: Yes (Hospitalization)
  Sender: ABBVIE
  Company Number: EU-ABBVIE-6487198

PATIENT
  Age: 65 Year
  Sex: Female

DRUGS (2)
  1. CARBIDOPA\LEVODOPA [Suspect]
     Active Substance: CARBIDOPA\LEVODOPA
     Indication: Parkinson^s disease
     Route: 050
     Dates: start: 20220428
  2. CARBIDOPA\LEVODOPA [Suspect]
     Active Substance: CARBIDOPA\LEVODOPA

REACTIONS (5)
  - Fall [Recovering/Resolving]
  - Freezing phenomenon [Recovering/Resolving]
  - Conversion disorder [Recovered/Resolved]
  - Insomnia [Unknown]
  - Wrist fracture [Recovering/Resolving]

NARRATIVE: CASE EVENT DATE: 20250905
